FAERS Safety Report 21639430 (Version 1)
Quarter: 2022Q4

REPORT INFORMATION
  Report Type: Report from Study
  Country: US (occurrence: US)
  Receive Date: 20221124
  Receipt Date: 20221124
  Transmission Date: 20230113
  Serious: Yes (Death)
  Sender: FDA-Public Use
  Company Number: US-ABBVIE-4212239

PATIENT
  Sex: Female

DRUGS (1)
  1. IMBRUVICA [Suspect]
     Active Substance: IBRUTINIB
     Indication: Acute lymphocytic leukaemia
     Dosage: FORM STRENGTH: 420 MILLIGRAM
     Route: 048

REACTIONS (12)
  - Capillaritis [Fatal]
  - Retroperitoneal fibrosis [Fatal]
  - Vasculitis [Unknown]
  - Oligospermia [Fatal]
  - Vasculitis [Unknown]
  - Infertility [Unknown]
  - Hypersensitivity [Unknown]
  - Retroperitoneal fibrosis [Unknown]
  - Retroperitoneal fibrosis [Unknown]
  - Autoimmune disorder [Unknown]
  - Infertility [Unknown]
  - Unevaluable event [Fatal]
